FAERS Safety Report 19247733 (Version 1)
Quarter: 2021Q2

REPORT INFORMATION
  Report Type: Spontaneous
  Country: US (occurrence: US)
  Receive Date: 20210512
  Receipt Date: 20210512
  Transmission Date: 20210717
  Serious: Yes (Hospitalization)
  Sender: FDA-Public Use
  Company Number: None

PATIENT
  Age: 25 Year
  Sex: Male
  Weight: 114.3 kg

DRUGS (2)
  1. ADVIL [Suspect]
     Active Substance: IBUPROFEN
     Indication: PAIN
     Dosage: ?          QUANTITY:123 CAPSULE(S);?
     Route: 048
     Dates: start: 20210512, end: 20210512
  2. TOPIRAMATE. [Suspect]
     Active Substance: TOPIRAMATE

REACTIONS (5)
  - Confusional state [None]
  - Palpitations [None]
  - Wrong product administered [None]
  - Feeling abnormal [None]
  - Nervousness [None]

NARRATIVE: CASE EVENT DATE: 20210512
